FAERS Safety Report 8468067 (Version 3)
Quarter: 2013Q4

REPORT INFORMATION
  Report Type: Spontaneous
  Country: US (occurrence: US)
  Receive Date: 20120320
  Receipt Date: 20131017
  Transmission Date: 20140711
  Serious: Yes (Hospitalization, Other)
  Sender: FDA-Public Use
  Company Number: US-PFIZER INC-2012041703

PATIENT
  Age: 25 Year
  Sex: Male
  Weight: 69.39 kg

DRUGS (3)
  1. AMOXICILLIN [Suspect]
     Indication: CHRONIC SINUSITIS
     Dosage: 500 MG, 3X/DAY
     Route: 048
     Dates: start: 20111205, end: 20111216
  2. AMOXICILLIN [Suspect]
     Indication: SINUSITIS
     Route: 048
  3. MECLIZINE [Concomitant]
     Indication: VERTIGO
     Dosage: 25 MG, UNK

REACTIONS (49)
  - Dysuria [Recovering/Resolving]
  - Swelling face [Recovering/Resolving]
  - Soft tissue injury [Not Recovered/Not Resolved]
  - VIIth nerve paralysis [Not Recovered/Not Resolved]
  - Acoustic neuroma [Unknown]
  - Adrenal neoplasm [Unknown]
  - Paralysis [Unknown]
  - Injury [Not Recovered/Not Resolved]
  - Face presentation [Unknown]
  - Skin exfoliation [Unknown]
  - Drug ineffective [Not Recovered/Not Resolved]
  - Poor quality drug administered [Unknown]
  - Skin injury [Unknown]
  - Fungal infection [Unknown]
  - Eye swelling [Unknown]
  - Tendonitis [Unknown]
  - Tinnitus [Not Recovered/Not Resolved]
  - Suspected counterfeit product [Unknown]
  - Weight decreased [Unknown]
  - Abdominal discomfort [Not Recovered/Not Resolved]
  - Infection [Not Recovered/Not Resolved]
  - Hypoaesthesia [Unknown]
  - Tension headache [Unknown]
  - Rash [Not Recovered/Not Resolved]
  - Local swelling [Not Recovered/Not Resolved]
  - Local swelling [Not Recovered/Not Resolved]
  - Facial nerve disorder [Not Recovered/Not Resolved]
  - Limb discomfort [Not Recovered/Not Resolved]
  - Limb discomfort [Not Recovered/Not Resolved]
  - Hypoaesthesia [Not Recovered/Not Resolved]
  - Depression [Not Recovered/Not Resolved]
  - Paraesthesia [Unknown]
  - Feeling abnormal [Unknown]
  - Crying [Unknown]
  - General physical health deterioration [Unknown]
  - Dysmorphism [Not Recovered/Not Resolved]
  - Feeling abnormal [Unknown]
  - Nerve injury [Not Recovered/Not Resolved]
  - Nervous system disorder [Not Recovered/Not Resolved]
  - Malaise [Not Recovered/Not Resolved]
  - Muscular weakness [Not Recovered/Not Resolved]
  - Skin disorder [Unknown]
  - Skin discolouration [Unknown]
  - Skin atrophy [Unknown]
  - Head deformity [Unknown]
  - Condition aggravated [Unknown]
  - Hypoaesthesia [Unknown]
  - Malaise [Unknown]
  - Depressed mood [Unknown]
